FAERS Safety Report 9577604 (Version 2)
Quarter: 2013Q4

REPORT INFORMATION
  Report Type: Spontaneous
  Country: US (occurrence: US)
  Receive Date: 20131001
  Receipt Date: 20131001
  Transmission Date: 20140711
  Serious: No
  Sender: FDA-Public Use
  Company Number: US-AMGEN-USASP2013000218

PATIENT
  Age: 49 Year
  Sex: Female
  Weight: 92.97 kg

DRUGS (2)
  1. ENBREL [Suspect]
     Indication: PRODUCT USED FOR UNKNOWN INDICATION
     Dosage: 50 MG, 2XWEEKLY
     Route: 058
     Dates: start: 20121205
  2. LOSARTAN/HCT [Concomitant]
     Dosage: 100-12.5
     Route: 048

REACTIONS (2)
  - Injection site reaction [Recovered/Resolved]
  - Injection site erythema [Recovered/Resolved]
